FAERS Safety Report 12307457 (Version 1)
Quarter: 2016Q2

REPORT INFORMATION
  Report Type: Spontaneous
  Country: RO (occurrence: RO)
  Receive Date: 20160426
  Receipt Date: 20160426
  Transmission Date: 20160815
  Serious: Yes (Death, Life-Threatening)
  Sender: FDA-Public Use
  Company Number: RO-JNJFOC-20160421530

PATIENT

DRUGS (2)
  1. INFLIXIMAB, RECOMBINANT [Suspect]
     Active Substance: INFLIXIMAB
     Indication: CROHN^S DISEASE
     Route: 042
     Dates: start: 2008, end: 2014
  2. AZATHIOPRINE. [Concomitant]
     Active Substance: AZATHIOPRINE
     Dosage: USED AT THE STANDARD DOSE OF 2-2.5 MG/KG/DAY
     Route: 065

REACTIONS (9)
  - Latent tuberculosis [Unknown]
  - Psoriasis [Unknown]
  - Crohn^s disease [Unknown]
  - Anaphylactic reaction [Unknown]
  - Metabolic syndrome [Fatal]
  - Hepatitis B [Unknown]
  - Drug effect decreased [Unknown]
  - Cerebrovascular accident [Fatal]
  - Chronic hepatitis C [Unknown]
